FAERS Safety Report 5051287-6 (Version None)
Quarter: 2006Q3

REPORT INFORMATION
  Report Type: 
  Country: None (occurrence: None)
  Receive Date: 20060714
  Receipt Date: 20060629
  Transmission Date: 20061208
  Serious: Yes (Hospitalization)
  Sender: FDA-Public Use
  Company Number: FR-AVENTIS-200612426FR

PATIENT
  Age: 58 Year
  Sex: Male
  Weight: 55 kg

DRUGS (11)
  1. LOVENOX [Suspect]
     Route: 058
     Dates: start: 20060513, end: 20060523
  2. RAPIFEN [Suspect]
     Indication: ANAESTHESIA
     Route: 042
     Dates: start: 20060513, end: 20060523
  3. CLAVENTIN [Suspect]
     Route: 042
     Dates: start: 20060515, end: 20060523
  4. FUNGIZONE [Suspect]
     Indication: ASPERGILLOSIS
     Route: 042
     Dates: start: 20060512, end: 20060517
  5. CATAPRES [Concomitant]
     Indication: HYPERTENSION
     Route: 042
     Dates: start: 20060513, end: 20060515
  6. PLAVIX [Concomitant]
  7. PRAVASTATIN [Concomitant]
  8. AMLOR [Concomitant]
     Indication: HYPERTENSION
  9. DI-ANTALVIC [Concomitant]
  10. FERROGRAD [Concomitant]
     Indication: IRON DEFICIENCY ANAEMIA
  11. ANTIFUNGALS FOR SYSTEMIC USE [Concomitant]
     Route: 048
     Dates: start: 20060518

REACTIONS (5)
  - ANAEMIA [None]
  - CYTOLYTIC HEPATITIS [None]
  - GASTROINTESTINAL HAEMORRHAGE [None]
  - MELAENA [None]
  - RENAL FAILURE ACUTE [None]
